FAERS Safety Report 4661476-8 (Version None)
Quarter: 2005Q2

REPORT INFORMATION
  Report Type: 
  Country: None (occurrence: None)
  Receive Date: 20050512
  Receipt Date: 20050512
  Transmission Date: 20051028
  Serious: Yes (Life-Threatening, Hospitalization)
  Sender: FDA-Public Use
  Company Number: None

PATIENT
  Age: 63 Year
  Sex: Male

DRUGS (4)
  1. LEVAQUIN [Suspect]
     Indication: PNEUMONIA
     Dosage: 500 MG   DAILY   INTRAVENOUS
     Route: 042
     Dates: start: 20050429, end: 20050502
  2. REMERON [Suspect]
     Indication: DEPRESSION
     Dosage: 15 MG   AT BEDTIME  ORAL
     Route: 048
     Dates: start: 20050429, end: 20050502
  3. LEVALBUTEROL [Concomitant]
  4. CIPROFLOXACIN [Concomitant]

REACTIONS (1)
  - ELECTROCARDIOGRAM QT PROLONGED [None]
